FAERS Safety Report 8924792 (Version 1)
Quarter: 2012Q4

REPORT INFORMATION
  Report Type: 
  Country: CO (occurrence: CO)
  Receive Date: 20121126
  Receipt Date: 20121126
  Transmission Date: 20130627
  Serious: Yes (Other)
  Sender: FDA-Public Use
  Company Number: CO-PFIZER INC-2012293996

PATIENT
  Age: 52 Year
  Sex: Female

DRUGS (5)
  1. LYRICA [Suspect]
     Indication: PAIN
     Dosage: one tablet of 75 mg, 1x/day at 7:00pm
     Route: 048
     Dates: start: 2011
  2. NEURONTIN [Concomitant]
     Indication: PAIN
     Dosage: 400 mg, 2x/day (each 12 hours)
     Route: 048
  3. OXYCODONE [Concomitant]
     Dosage: 10 mg, 2x/day (each 12 hours)
     Route: 048
  4. AMITRIPTYLINE [Concomitant]
     Dosage: 10 mg, 2x/day (each 12 hours)
     Route: 048
  5. OMEPRAZOL [Concomitant]
     Dosage: UNK
     Dates: end: 201208

REACTIONS (3)
  - Spinal column injury [Unknown]
  - Pain in extremity [Not Recovered/Not Resolved]
  - Limb discomfort [Not Recovered/Not Resolved]
